FAERS Safety Report 5307673-X (Version None)
Quarter: 2007Q2

REPORT INFORMATION
  Report Type: 
  Country: None (occurrence: None)
  Receive Date: 20070419
  Receipt Date: 20070407
  Transmission Date: 20071010
  Serious: Yes (Hospitalization)
  Sender: FDA-Public Use
  Company Number: 100#03#2007-01081

PATIENT
  Age: 62 Year
  Sex: Female

DRUGS (17)
  1. CIPROFLOXACIN [Suspect]
     Indication: PROPHYLAXIS
     Dosage: 500 MG TWICE A DAY ORAL
     Route: 048
     Dates: start: 20070117, end: 20070125
  2. CIPROFLOXACIN [Suspect]
     Indication: PROPHYLAXIS
     Dosage: 500 MG TWICE A DAY ORAL
     Route: 048
     Dates: start: 20070213, end: 20070214
  3. ACICLOVIR (ACICLOVIR) (ACICLOVIR) [Concomitant]
  4. ALLOPURINOL (ALLOPURINOL) (ALLOPURINOL) [Concomitant]
  5. CYCLOPHOSPHAMIDE [Concomitant]
  6. DOXORUBICIN (DOXORUBICIN) (DOXORUBICIN) [Concomitant]
  7. ESTRADIOL [Concomitant]
  8. FLUCONAZOLE (FLUCONAZOLE) (FLUCONAZOLE) [Concomitant]
  9. GLYCERYL TRINITRATE (GLYCERYL TRINITRATE) (GLYCERYL TRINITRATE) [Concomitant]
  10. GRANISETRON (GRANISETRON) (GRANISETRON) [Concomitant]
  11. NORETHISTERONE ACETATE (NORETHISTERONE ACETATE) (NORETHISTERONE) [Concomitant]
  12. OMEPRAZOLE [Concomitant]
  13. PREDNISOLONE [Concomitant]
  14. QUININE (QUININE) (QUININE) [Concomitant]
  15. RANITIDINE (RANITIDINE) (RANITIDINE) [Concomitant]
  16. RITUXIMAB (RITUXIMAB) (RITUXIMAB) [Concomitant]
  17. VINCRISTINE (VINCRISTINE) (VINCRISTINE) [Concomitant]

REACTIONS (4)
  - HYPOTENSION [None]
  - RASH ERYTHEMATOUS [None]
  - RASH MACULO-PAPULAR [None]
  - TACHYCARDIA [None]
